FAERS Safety Report 20344529 (Version 8)
Quarter: 2022Q4

REPORT INFORMATION
  Report Type: Report from Study
  Country: US (occurrence: US)
  Receive Date: 20220118
  Receipt Date: 20221128
  Transmission Date: 20230113
  Serious: No
  Sender: FDA-Public Use
  Company Number: US-NOVARTISTESTPH-NVSC2022US007848

PATIENT
  Sex: Female

DRUGS (3)
  1. COSENTYX [Suspect]
     Active Substance: SECUKINUMAB
     Indication: Ankylosing spondylitis
     Dosage: 150 MG, QMO
     Route: 058
  2. COSENTYX [Suspect]
     Active Substance: SECUKINUMAB
     Route: 058
  3. SULFASALAZINE [Suspect]
     Active Substance: SULFASALAZINE
     Indication: Product used for unknown indication
     Dosage: UNK, BID
     Route: 065

REACTIONS (10)
  - Fatigue [Recovered/Resolved]
  - Illness [Recovered/Resolved]
  - Swelling of eyelid [Unknown]
  - Blepharitis [Unknown]
  - Eczema [Recovered/Resolved]
  - Feeling abnormal [Recovering/Resolving]
  - COVID-19 [Unknown]
  - Dermatitis contact [Unknown]
  - Condition aggravated [Unknown]
  - Inappropriate schedule of product administration [Unknown]
